FAERS Safety Report 5761399-7 (Version None)
Quarter: 2008Q2

REPORT INFORMATION
  Report Type: 
  Country: None (occurrence: None)
  Receive Date: 20080606
  Receipt Date: 20080527
  Transmission Date: 20081010
  Serious: Yes (Hospitalization)
  Sender: FDA-Public Use
  Company Number: DE-ABBOTT-07P-062-0375854-00

PATIENT
  Sex: Female
  Weight: 91 kg

DRUGS (16)
  1. HUMIRA [Suspect]
     Indication: CROHN'S DISEASE
     Route: 058
     Dates: start: 20070718, end: 20070718
  2. BETAMETHASONE [Concomitant]
     Indication: DRUG USE FOR UNKNOWN INDICATION
  3. DEXAMETHASONE TAB [Concomitant]
     Indication: DRUG USE FOR UNKNOWN INDICATION
  4. CORTISONE [Concomitant]
     Indication: DRUG USE FOR UNKNOWN INDICATION
  5. METHYLPREDNISOLONE [Concomitant]
     Indication: DRUG USE FOR UNKNOWN INDICATION
  6. PREDNISOLONE [Concomitant]
     Indication: DRUG USE FOR UNKNOWN INDICATION
     Dates: start: 20070629, end: 20070704
  7. PREDNISOLONE [Concomitant]
     Dates: start: 20070705, end: 20070726
  8. PREDNISOLONE [Concomitant]
     Dates: start: 20070727, end: 20070731
  9. PREDNISOLONE [Concomitant]
     Dates: start: 20070801
  10. PREDNISONE TAB [Concomitant]
     Indication: DRUG USE FOR UNKNOWN INDICATION
  11. PARAMETHASONE [Concomitant]
     Indication: DRUG USE FOR UNKNOWN INDICATION
  12. PREDNYLIDENE [Concomitant]
     Indication: DRUG USE FOR UNKNOWN INDICATION
  13. CERTOLIZUMAB [Concomitant]
     Indication: DRUG USE FOR UNKNOWN INDICATION
  14. DOXEPIN HCL [Concomitant]
     Indication: DEPRESSION
     Dates: start: 20050101
  15. LEKOVIT CA [Concomitant]
     Indication: OSTEOPOROSIS PROPHYLAXIS
     Dates: start: 20060801
  16. PANTOPRAZOLE SODIUM [Concomitant]
     Indication: GASTROOESOPHAGEAL REFLUX DISEASE
     Dates: start: 20070709

REACTIONS (1)
  - CROHN'S DISEASE [None]
